FAERS Safety Report 9887859 (Version 2)
Quarter: 2014Q1

REPORT INFORMATION
  Report Type: Report from Study
  Country: RO (occurrence: RO)
  Receive Date: 20140211
  Receipt Date: 20140211
  Transmission Date: 20141002
  Serious: Yes (Death)
  Sender: FDA-Public Use
  Company Number: RO-SANOFI-AVENTIS-2012SA058863

PATIENT
  Age: 50 Year
  Sex: Female
  Weight: 72 kg

DRUGS (3)
  1. TERIFLUNOMIDE [Suspect]
     Indication: MULTIPLE SCLEROSIS RELAPSE
     Route: 048
     Dates: start: 20120131, end: 20120813
  2. INDAPAMIDE [Concomitant]
     Route: 065
     Dates: start: 200911
  3. NEBILET [Concomitant]
     Route: 065
     Dates: start: 200911

REACTIONS (1)
  - Completed suicide [Fatal]
